FAERS Safety Report 6678268-0 (Version None)
Quarter: 2010Q2

REPORT INFORMATION
  Report Type: 
  Country: None (occurrence: None)
  Receive Date: 20100408
  Receipt Date: 20100408
  Transmission Date: 20101027
  Serious: Yes (Hospitalization)
  Sender: FDA-Public Use
  Company Number: None

PATIENT
  Age: 49 Year
  Sex: Female
  Weight: 65.7716 kg

DRUGS (2)
  1. ALLOPURINOL [Suspect]
     Indication: GOUT
     Dosage: 2 TABLETS EVERY 4 HOURS PO
     Route: 048
     Dates: start: 20100403, end: 20100404
  2. ALLOPURINOL [Suspect]
     Indication: PROPHYLAXIS
     Dosage: 2 TABLETS EVERY 4 HOURS PO
     Route: 048
     Dates: start: 20100403, end: 20100404

REACTIONS (2)
  - DRUG HYPERSENSITIVITY [None]
  - WRONG DRUG ADMINISTERED [None]
